FAERS Safety Report 14892906 (Version 1)
Quarter: 2018Q2

REPORT INFORMATION
  Report Type: Report from Study
  Country: US (occurrence: US)
  Receive Date: 20180514
  Receipt Date: 20180514
  Transmission Date: 20180711
  Serious: Yes (Other)
  Sender: FDA-Public Use
  Company Number: US-GILEAD-2018-0337133

PATIENT
  Age: 64 Year
  Sex: Female

DRUGS (1)
  1. LEDIPASVIR/SOFOSBUVIR [Suspect]
     Active Substance: LEDIPASVIR\SOFOSBUVIR
     Indication: HEPATITIS C
     Dosage: 1 DF, QD
     Route: 048
     Dates: start: 20141102, end: 20150202

REACTIONS (11)
  - Disturbance in attention [Not Recovered/Not Resolved]
  - Cerebral disorder [Not Recovered/Not Resolved]
  - Hypometabolism [Not Recovered/Not Resolved]
  - Weight increased [Unknown]
  - Weight loss poor [Not Recovered/Not Resolved]
  - Arthralgia [Unknown]
  - Muscular weakness [Recovered/Resolved]
  - Loss of consciousness [Recovered/Resolved]
  - Abulia [Recovered/Resolved]
  - Amnesia [Recovered/Resolved]
  - Fatigue [Not Recovered/Not Resolved]
